FAERS Safety Report 8475618-X (Version None)
Quarter: 2012Q2

REPORT INFORMATION
  Report Type: 
  Country: None (occurrence: None)
  Receive Date: 20120529
  Receipt Date: 20110914
  Transmission Date: 20120825
  Serious: Yes (Other)
  Sender: FDA-Public Use
  Company Number: 2011PV000051

PATIENT
  Sex: Female

DRUGS (1)
  1. DEPOCYT [Suspect]
     Indication: NON-HODGKIN'S LYMPHOMA
     Dosage: ;X3;INTH
     Route: 037
     Dates: start: 20110101

REACTIONS (1)
  - BACK PAIN [None]
